FAERS Safety Report 9639051 (Version 3)
Quarter: 2013Q4

REPORT INFORMATION
  Report Type: Spontaneous
  Country: JP (occurrence: JP)
  Receive Date: 20131022
  Receipt Date: 20131125
  Transmission Date: 20140711
  Serious: Yes (Hospitalization)
  Sender: FDA-Public Use
  Company Number: JP-009507513-1310JPN009915

PATIENT
  Age: 70 Year
  Sex: Female
  Weight: 61 kg

DRUGS (4)
  1. JANUVIA TABLETS 50MG [Suspect]
     Indication: DIABETES MELLITUS
     Dosage: 50 MG, QD
     Route: 048
     Dates: start: 20110305, end: 20130929
  2. METGLUCO [Concomitant]
     Indication: DIABETES MELLITUS
     Dosage: 250 MG, TID
     Route: 048
     Dates: start: 20100306
  3. METHYCOBAL [Concomitant]
     Indication: NEUROPATHY PERIPHERAL
     Dosage: 500 MICROGRAM, TID
     Route: 048
     Dates: start: 20100306
  4. PRORENAL [Concomitant]
     Indication: LUMBAR SPINAL STENOSIS
     Dosage: 5 MICROGRAM, TID
     Route: 048
     Dates: start: 20100306

REACTIONS (2)
  - Polymyalgia rheumatica [Recovering/Resolving]
  - Anaemia [Unknown]
